FAERS Safety Report 7014463-9 (Version None)
Quarter: 2010Q3

REPORT INFORMATION
  Report Type: 
  Country: None (occurrence: None)
  Receive Date: 20100927
  Receipt Date: 20100914
  Transmission Date: 20110219
  Serious: Yes (Hospitalization)
  Sender: FDA-Public Use
  Company Number: ES-ELI_LILLY_AND_COMPANY-ES201009003955

PATIENT
  Sex: Female

DRUGS (5)
  1. FORTEO [Suspect]
     Indication: OSTEOPOROSIS
     Dosage: 20 UG, DAILY (1/D)
     Route: 058
     Dates: start: 20100525
  2. OMEPRAZOLE [Concomitant]
     Dosage: UNK, DAILY (1/D)
     Route: 048
  3. ATENOLOL [Concomitant]
     Indication: HYPERTENSION
     Dosage: 50 MG, DAILY (1/D)
     Route: 048
  4. DACORTIN [Concomitant]
     Indication: THROMBOCYTOPENIA
     Dosage: UNK, AS NEEDED (ACCORDING PLATELETS LEVELS)
     Route: 048
  5. ROMIPLOSTIM [Concomitant]
     Indication: THROMBOCYTOPENIA
     Route: 058

REACTIONS (1)
  - FEMUR FRACTURE [None]
